FAERS Safety Report 20573737 (Version 2)
Quarter: 2024Q1

REPORT INFORMATION
  Report Type: Spontaneous
  Country: US (occurrence: US)
  Receive Date: 20220309
  Receipt Date: 20240130
  Transmission Date: 20240410
  Serious: No
  Sender: FDA-Public Use
  Company Number: US-HORIZON THERAPEUTICS-HZN-2021-006185

PATIENT

DRUGS (1)
  1. PENNSAID [Suspect]
     Active Substance: DICLOFENAC SODIUM
     Indication: Osteoarthritis
     Dosage: 40 MG, BID, 2 PUMPS
     Route: 065

REACTIONS (8)
  - Pain [Unknown]
  - Abnormal behaviour [Unknown]
  - Malaise [Unknown]
  - Feeling abnormal [Unknown]
  - Hypersensitivity [Unknown]
  - Product dose omission issue [Unknown]
  - Housebound [Unknown]
  - Gait disturbance [Unknown]
